FAERS Safety Report 5571432-3 (Version None)
Quarter: 2007Q4

REPORT INFORMATION
  Report Type: 
  Country: None (occurrence: None)
  Receive Date: 20071221
  Receipt Date: 20071217
  Transmission Date: 20080405
  Serious: Yes (Life-Threatening, Hospitalization, Other)
  Sender: FDA-Public Use
  Company Number: GB-BRISTOL-MYERS SQUIBB COMPANY-14022057

PATIENT
  Age: 39 Year
  Sex: Male

DRUGS (9)
  1. METFORMIN HCL [Suspect]
  2. ANGETTES [Suspect]
  3. AMLODIPINE [Suspect]
  4. DOXAZOSIN [Suspect]
  5. CALCIUM [Concomitant]
  6. ADRENALINE [Concomitant]
  7. NORADRENALINE [Concomitant]
  8. POTASSIUM CHLORIDE [Concomitant]
  9. DEXTROSE [Concomitant]

REACTIONS (3)
  - HYPOGLYCAEMIA [None]
  - HYPOTENSION [None]
  - OVERDOSE [None]
